FAERS Safety Report 11935011 (Version 1)
Quarter: 2016Q1

REPORT INFORMATION
  Report Type: Not Available
  Country: NL (occurrence: NL)
  Receive Date: 20160121
  Receipt Date: 20160121
  Transmission Date: 20160526
  Serious: Yes (Other)
  Sender: FDA-Public Use
  Company Number: NL-ANIPHARMA-2016-NL-000001

PATIENT
  Age: 41 Year
  Sex: Female

DRUGS (1)
  1. TESTOSTERONE GEL 1% (NON-SPECIFIC) [Suspect]
     Active Substance: TESTOSTERONE
     Dosage: 50 MG DAILY
     Route: 061
     Dates: start: 2008

REACTIONS (2)
  - Breast cancer [Unknown]
  - Breast cancer [None]
